FAERS Safety Report 12572195 (Version 1)
Quarter: 2016Q3

REPORT INFORMATION
  Report Type: Spontaneous
  Country: CN (occurrence: CN)
  Receive Date: 20160719
  Receipt Date: 20160719
  Transmission Date: 20161109
  Serious: Yes (Other)
  Sender: FDA-Public Use
  Company Number: CN-SA-2016SA131047

PATIENT
  Age: 51 Year
  Sex: Female
  Weight: 64 kg

DRUGS (2)
  1. OXALIPLATIN. [Suspect]
     Active Substance: OXALIPLATIN
     Indication: CHEMOTHERAPY
     Route: 041
     Dates: start: 20151130
  2. OTERACIL POTASSIUM/GIMERACIL/TEGAFUR [Concomitant]
     Indication: CHEMOTHERAPY
     Route: 048
     Dates: start: 20151130, end: 20151204

REACTIONS (1)
  - Bone marrow failure [Unknown]

NARRATIVE: CASE EVENT DATE: 20151204
